FAERS Safety Report 4795159-0 (Version None)
Quarter: 2005Q4

REPORT INFORMATION
  Report Type: 
  Country: None (occurrence: None)
  Receive Date: 20051006
  Receipt Date: 20051006
  Transmission Date: 20060501
  Serious: Yes (Death)
  Sender: FDA-Public Use
  Company Number: None

PATIENT
  Age: 24 Year
  Sex: Female

DRUGS (2)
  1. GEODON [Suspect]
     Indication: CYCLOTHYMIC DISORDER
     Dosage: PO
     Route: 048
  2. LEXAPRO [Suspect]
     Indication: CYCLOTHYMIC DISORDER
     Dosage: PO
     Route: 048

REACTIONS (2)
  - ASPHYXIA [None]
  - COMPLETED SUICIDE [None]
